FAERS Safety Report 18030098 (Version 1)
Quarter: 2020Q3

REPORT INFORMATION
  Report Type: Spontaneous
  Country: US (occurrence: US)
  Receive Date: 20200715
  Receipt Date: 20200715
  Transmission Date: 20201103
  Serious: No
  Sender: FDA-Public Use
  Company Number: None

PATIENT

DRUGS (1)
  1. METOPROLOL 25MG [Suspect]
     Active Substance: METOPROLOL

REACTIONS (1)
  - Drug dispensed to wrong patient [None]
